FAERS Safety Report 8832856 (Version 1)
Quarter: 2012Q4

REPORT INFORMATION
  Report Type: 
  Country: US (occurrence: None)
  Receive Date: 20121009
  Receipt Date: 20121009
  Transmission Date: 20130627
  Serious: Yes (Hospitalization)
  Sender: FDA-Public Use
  Company Number: None

PATIENT
  Sex: Male
  Weight: 14.6 kg

DRUGS (2)
  1. BUSULFAN [Suspect]
     Dates: end: 20120911
  2. MELPHALAN [Suspect]
     Dates: end: 20120912

REACTIONS (8)
  - Respiratory distress [None]
  - Coagulopathy [None]
  - Encephalopathy [None]
  - Hepatic encephalopathy [None]
  - Multi-organ failure [None]
  - Dialysis [None]
  - Hyperammonaemia [None]
  - Venoocclusive liver disease [None]
